FAERS Safety Report 9434159 (Version 2)
Quarter: 2013Q4

REPORT INFORMATION
  Report Type: Spontaneous
  Country: FR (occurrence: FR)
  Receive Date: 20130801
  Receipt Date: 20131220
  Transmission Date: 20140711
  Serious: Yes (Hospitalization, Other)
  Sender: FDA-Public Use
  Company Number: FR-BRISTOL-MYERS SQUIBB COMPANY-19138924

PATIENT
  Age: 82 Year
  Sex: Male

DRUGS (4)
  1. COUMADINE [Suspect]
     Indication: ATRIAL FIBRILLATION
     Dosage: TABS
     Dates: end: 20130707
  2. LOVENOX [Suspect]
     Route: 058
     Dates: start: 20130629, end: 20130705
  3. CORDARONE [Concomitant]
  4. BACTRIM FORTE TABLETS [Concomitant]

REACTIONS (6)
  - Muscle haemorrhage [Recovered/Resolved with Sequelae]
  - Haemoglobin decreased [Recovered/Resolved]
  - Cardiac failure [Unknown]
  - Mantle cell lymphoma stage IV [Not Recovered/Not Resolved]
  - Dyspnoea [Recovered/Resolved]
  - Oedema peripheral [Recovered/Resolved]
